FAERS Safety Report 4638461-5 (Version None)
Quarter: 2005Q2

REPORT INFORMATION
  Report Type: 
  Country: None (occurrence: None)
  Receive Date: 20050418
  Receipt Date: 20050301
  Transmission Date: 20051028
  Serious: Yes (Other)
  Sender: FDA-Public Use
  Company Number: 2005055748

PATIENT
  Age: 60 Year
  Sex: Male

DRUGS (1)
  1. UNASYN [Suspect]
     Indication: PROPHYLAXIS
     Dosage: 1.5 GRAM (STAT), INTRAVENOUS
     Route: 042

REACTIONS (3)
  - CONVULSION [None]
  - DYSPNOEA [None]
  - PRURITUS [None]
